FAERS Safety Report 24837550 (Version 3)
Quarter: 2025Q1

REPORT INFORMATION
  Report Type: Report from Study
  Country: AU (occurrence: AU)
  Receive Date: 20250113
  Receipt Date: 20250228
  Transmission Date: 20250409
  Serious: Yes (Other)
  Sender: UCB
  Company Number: AU-UCBSA-2025001607

PATIENT
  Sex: Female

DRUGS (5)
  1. CERTOLIZUMAB PEGOL [Suspect]
     Active Substance: CERTOLIZUMAB PEGOL
     Indication: Rheumatoid arthritis
     Dosage: 400 MILLIGRAM, EV 2 WEEKS(QOW)
     Route: 058
     Dates: start: 20231117
  2. CERTOLIZUMAB PEGOL [Suspect]
     Active Substance: CERTOLIZUMAB PEGOL
     Dosage: 200 MILLIGRAM, EV 2 WEEKS(QOW)
     Route: 058
     Dates: end: 20240724
  3. CIMZIA [Suspect]
     Active Substance: CERTOLIZUMAB PEGOL
     Indication: Rheumatoid arthritis
     Dosage: 200 MILLIGRAM, EV 2 WEEKS(QOW)
     Route: 058
     Dates: start: 20240724
  4. HYDROXYCHLOROQUINE [Concomitant]
     Active Substance: HYDROXYCHLOROQUINE
     Indication: Rheumatoid arthritis
     Dates: start: 20061114
  5. PROLIA [Concomitant]
     Active Substance: DENOSUMAB
     Indication: Osteoporosis

REACTIONS (8)
  - Rheumatoid arthritis [Not Recovered/Not Resolved]
  - Skin reaction [Unknown]
  - Vision blurred [Unknown]
  - Injection site pain [Unknown]
  - COVID-19 [Unknown]
  - Fall [Unknown]
  - Concussion [Unknown]
  - Adverse event [Unknown]

NARRATIVE: CASE EVENT DATE: 20230101
